FAERS Safety Report 11152697 (Version 2)
Quarter: 2015Q2

REPORT INFORMATION
  Report Type: Report from Study
  Country: CN (occurrence: CN)
  Receive Date: 20150601
  Receipt Date: 20150612
  Transmission Date: 20150821
  Serious: Yes (Hospitalization)
  Sender: FDA-Public Use
  Company Number: CN-PFIZER INC-2015173690

PATIENT
  Age: 66 Year
  Sex: Female
  Weight: 50 kg

DRUGS (4)
  1. CEFTAZIDIME. [Concomitant]
     Active Substance: CEFTAZIDIME
     Indication: INFECTION
     Dosage: 1.0 G, 1X/DAY
     Route: 041
     Dates: start: 20150509, end: 20150513
  2. AMBROXOL HYDROCHLORIDE [Concomitant]
     Active Substance: AMBROXOL HYDROCHLORIDE
     Indication: INFECTION
     Dosage: 30 MG, 1X/DAY
     Route: 041
     Dates: start: 20150509, end: 20150513
  3. TOFACITINIB CITRATE [Suspect]
     Active Substance: TOFACITINIB CITRATE
     Indication: PSORIASIS
     Dosage: 10MG (2 TABLETS) TWICE DAILY (BID)
     Route: 048
     Dates: start: 20140507, end: 20150507
  4. AMINOPHYLLINE [Concomitant]
     Active Substance: AMINOPHYLLINE
     Indication: INFECTION
     Dosage: 0.25 G, 1X/DAY
     Route: 042
     Dates: start: 20150509, end: 20150513

REACTIONS (1)
  - Bronchopneumonia [Recovering/Resolving]

NARRATIVE: CASE EVENT DATE: 20150514
